FAERS Safety Report 5682382-6 (Version None)
Quarter: 2008Q1

REPORT INFORMATION
  Report Type: 
  Country: None (occurrence: None)
  Receive Date: 20080327
  Receipt Date: 20080214
  Transmission Date: 20080703
  Serious: Yes (Hospitalization)
  Sender: FDA-Public Use
  Company Number: PHHO2004FR19106

PATIENT

DRUGS (2)
  1. TOBI [Suspect]
     Indication: PSEUDOMONAS INFECTION
     Dosage: 300 MG, Q12H
     Dates: start: 20040413, end: 20040510
  2. TOBI [Suspect]
     Dosage: 300 MG, BID

REACTIONS (1)
  - STENOTROPHOMONAS INFECTION [None]
